FAERS Safety Report 10578446 (Version 1)
Quarter: 2014Q4

REPORT INFORMATION
  Report Type: Spontaneous
  Country: US (occurrence: None)
  Receive Date: 20141111
  Receipt Date: 20141111
  Transmission Date: 20150529
  Serious: Yes (Other)
  Sender: FDA-Public Use
  Company Number: None

PATIENT
  Age: 52 Year
  Sex: Female

DRUGS (2)
  1. PROCRIT [Concomitant]
     Active Substance: ERYTHROPOIETIN
  2. TACROLIMUS 1MG SANDOZ [Suspect]
     Active Substance: TACROLIMUS
     Indication: TRANSPLANT
     Route: 048

REACTIONS (2)
  - Neoplasm malignant [None]
  - Skin lesion [None]

NARRATIVE: CASE EVENT DATE: 20141107
